FAERS Safety Report 19881748 (Version 1)
Quarter: 2021Q3

REPORT INFORMATION
  Report Type: Other
  Country: None (occurrence: US)
  Receive Date: 20210924
  Receipt Date: 20210924
  Transmission Date: 20211014
  Serious: Yes (Hospitalization)
  Sender: FDA-Public Use
  Company Number: US-B.BRAUN MEDICAL INC.-2118785

PATIENT
  Age: 27 Year
  Sex: Male

DRUGS (1)
  1. BUPIVACAINE HYDROCHLORIDE WITH DEXTROSE [Suspect]
     Active Substance: BUPIVACAINE HYDROCHLORIDE
     Indication: PAIN MANAGEMENT

REACTIONS (2)
  - Product administered at inappropriate site [Recovered/Resolved]
  - Spinal cord injury cervical [Recovered/Resolved]
